FAERS Safety Report 5264055-7 (Version None)
Quarter: 2007Q1

REPORT INFORMATION
  Report Type: 
  Country: None (occurrence: None)
  Receive Date: 20070313
  Receipt Date: 20070227
  Transmission Date: 20070707
  Serious: Yes (Other)
  Sender: FDA-Public Use
  Company Number: US-ELI_LILLY_AND_COMPANY-US200702005599

PATIENT
  Age: 49 Year
  Sex: Female

DRUGS (3)
  1. CYMBALTA [Suspect]
     Indication: PAIN
     Dosage: 60 MG, UNK
     Dates: start: 20070101
  2. KLONOPIN [Concomitant]
  3. FLUOXETINE [Concomitant]

REACTIONS (1)
  - PULMONARY FIBROSIS [None]
